FAERS Safety Report 16073765 (Version 1)
Quarter: 2019Q1

REPORT INFORMATION
  Report Type: Spontaneous
  Country: US (occurrence: US)
  Receive Date: 20190314
  Receipt Date: 20190314
  Transmission Date: 20190418
  Serious: No
  Sender: FDA-Public Use
  Company Number: US-US WORLDMEDS, LLC-USW201901-000226

PATIENT
  Age: 41 Year
  Sex: Male

DRUGS (5)
  1. WELLBUTRIN [Concomitant]
     Active Substance: BUPROPION HYDROCHLORIDE
     Dosage: STARTED ^OVER 1 YEAR AGO^
     Route: 048
  2. ALPRAZOLAM. [Concomitant]
     Active Substance: ALPRAZOLAM
     Dosage: STARTED ^1 YEAR AGO^
  3. ALPRAZOLAM. [Concomitant]
     Active Substance: ALPRAZOLAM
     Dosage: SIX MONTHS AGO
  4. LUCEMYRA [Suspect]
     Active Substance: LOFEXIDINE
     Dates: start: 20190122
  5. ALPRAZOLAM. [Concomitant]
     Active Substance: ALPRAZOLAM
     Dosage: THE FIRST DAY HE STARTED LUCEMYRA

REACTIONS (3)
  - Dyskinesia [Not Recovered/Not Resolved]
  - Somnolence [Unknown]
  - Asthenia [Unknown]

NARRATIVE: CASE EVENT DATE: 20190122
